FAERS Safety Report 20349784 (Version 1)
Quarter: 2022Q1

REPORT INFORMATION
  Report Type: Spontaneous
  Country: US (occurrence: None)
  Receive Date: 20220117
  Receipt Date: 20220117
  Transmission Date: 20220424
  Serious: No
  Sender: FDA-Public Use
  Company Number: None

PATIENT
  Age: 24 Year
  Sex: Female

DRUGS (4)
  1. LISTERINE TOTAL CARE ZERO ALCOHOL ANTICAVITY FRESH MINT [Suspect]
     Active Substance: SODIUM FLUORIDE
     Indication: Prophylaxis
     Dosage: OTHER QUANTITY : 2 TEASPOON(S);?FREQUENCY : TWICE A DAY;?OTHER ROUTE : ORALLY - SWISHED THEN SPIT OU
     Route: 050
  2. LEVOTHYROXINE [Concomitant]
     Active Substance: LEVOTHYROXINE
  3. WOMEN^S PROBIOTICS [Concomitant]
  4. VITAMIN D [Concomitant]
     Active Substance: VITAMIN D NOS

REACTIONS (2)
  - Chemical burn of oral cavity [None]
  - Oral mucosal exfoliation [None]

NARRATIVE: CASE EVENT DATE: 20220116
